FAERS Safety Report 14488184 (Version 1)
Quarter: 2018Q1

REPORT INFORMATION
  Report Type: Spontaneous
  Country: NL (occurrence: NL)
  Receive Date: 20180205
  Receipt Date: 20180205
  Transmission Date: 20180509
  Serious: Yes (Other)
  Sender: FDA-Public Use
  Company Number: NL-ELI_LILLY_AND_COMPANY-NL201801013179

PATIENT
  Age: 53 Year
  Sex: Male
  Weight: 63 kg

DRUGS (1)
  1. OLARATUMAB [Suspect]
     Active Substance: OLARATUMAB
     Indication: SARCOMA
     Dosage: 15 MG/KG, UNKNOWN
     Route: 042
     Dates: start: 20171003

REACTIONS (2)
  - Off label use [Unknown]
  - Pneumothorax [Recovering/Resolving]

NARRATIVE: CASE EVENT DATE: 20180114
